FAERS Safety Report 4420750-0 (Version None)
Quarter: 2004Q3

REPORT INFORMATION
  Report Type: 
  Country: None (occurrence: None)
  Receive Date: 20040809
  Receipt Date: 20040514
  Transmission Date: 20050211
  Serious: No
  Sender: FDA-Public Use
  Company Number: US-GLAXOSMITHKLINE-A0510924A

PATIENT
  Sex: Female

DRUGS (4)
  1. PAXIL [Suspect]
     Dosage: 40MG PER DAY
     Route: 048
  2. EFFEXOR [Concomitant]
  3. DILANTIN [Concomitant]
  4. REMICADE [Concomitant]

REACTIONS (1)
  - ANXIETY [None]
